FAERS Safety Report 6251897-4 (Version None)
Quarter: 2009Q2

REPORT INFORMATION
  Report Type: 
  Country: None (occurrence: None)
  Receive Date: 20090629
  Receipt Date: 20090622
  Transmission Date: 20091009
  Serious: Yes (Life-Threatening, Hospitalization)
  Sender: FDA-Public Use
  Company Number: 09IN002135

PATIENT
  Age: 30 Year
  Sex: Female

DRUGS (1)
  1. CETIRIZINE [Suspect]
     Indication: IDIOPATHIC URTICARIA
     Dosage: 10 MG, SINGLE, ORAL
     Route: 048

REACTIONS (7)
  - ANAPHYLACTIC SHOCK [None]
  - DISORIENTATION [None]
  - DYSPNOEA [None]
  - LOSS OF CONSCIOUSNESS [None]
  - PRURITUS [None]
  - RESTLESSNESS [None]
  - URTICARIA [None]
